FAERS Safety Report 8817756 (Version 1)
Quarter: 2012Q4

REPORT INFORMATION
  Report Type: 
  Country: US (occurrence: US)
  Receive Date: 20121001
  Receipt Date: 20121001
  Transmission Date: 20130627
  Serious: Yes (Other)
  Sender: FDA-Public Use
  Company Number: US-PFIZER INC-2012238937

PATIENT
  Sex: Male

DRUGS (1)
  1. ZOSYN [Suspect]
     Dosage: UNK

REACTIONS (3)
  - General physical health deterioration [Unknown]
  - White blood cell count increased [Unknown]
  - White blood cell count abnormal [Unknown]
